FAERS Safety Report 9474057 (Version 1)
Quarter: 2013Q3

REPORT INFORMATION
  Report Type: Spontaneous
  Country: GB (occurrence: GB)
  Receive Date: 20130823
  Receipt Date: 20130823
  Transmission Date: 20140515
  Serious: Yes (Other)
  Sender: FDA-Public Use
  Company Number: PHHY2013GB089822

PATIENT
  Age: 28 Year
  Sex: Female
  Weight: 82.55 kg

DRUGS (2)
  1. DICLOFENAC [Suspect]
     Indication: PROCEDURAL PAIN
     Dosage: 50 MG
     Route: 048
     Dates: start: 20130318, end: 20130321
  2. LAMICTAL [Interacting]

REACTIONS (3)
  - Grand mal convulsion [Recovered/Resolved]
  - Initial insomnia [Recovered/Resolved]
  - Drug interaction [Unknown]
